FAERS Safety Report 8837126 (Version 1)
Quarter: 2012Q4

REPORT INFORMATION
  Report Type: 
  Country: DE (occurrence: DE)
  Receive Date: 20121011
  Receipt Date: 20121011
  Transmission Date: 20130627
  Serious: Yes (Other)
  Sender: FDA-Public Use
  Company Number: DE-ROCHE-1141219

PATIENT

DRUGS (4)
  1. MABTHERA [Suspect]
     Indication: CENTRAL NERVOUS SYSTEM LYMPHOMA
     Dosage: over 120 min on day 0 during the first three cycles
     Route: 065
  2. METHOTREXATE [Suspect]
     Indication: CENTRAL NERVOUS SYSTEM LYMPHOMA
     Dosage: 4 g/m2 over 4 h on day 1
     Route: 065
  3. IFOSFAMIDE [Suspect]
     Indication: CENTRAL NERVOUS SYSTEM LYMPHOMA
     Dosage: 1.5 g/m2 over 3 h on days 3, 4, and 5
     Route: 065
  4. DEXAMETHASONE [Suspect]
     Indication: CENTRAL NERVOUS SYSTEM LYMPHOMA
     Dosage: for 10 days during the first cycle only
     Route: 065

REACTIONS (9)
  - Nephropathy toxic [Unknown]
  - Haematotoxicity [Unknown]
  - Anaemia [Unknown]
  - Thrombocytopenia [Unknown]
  - Leukopenia [Unknown]
  - Infection [Unknown]
  - Sepsis [Unknown]
  - Pulmonary embolism [Unknown]
  - Hepatotoxicity [Unknown]
